FAERS Safety Report 5486632-0 (Version None)
Quarter: 2007Q4

REPORT INFORMATION
  Report Type: 
  Country: None (occurrence: None)
  Receive Date: 20071016
  Receipt Date: 20071004
  Transmission Date: 20080405
  Serious: Yes (Death, Hospitalization)
  Sender: FDA-Public Use
  Company Number: US-AVENTIS-200718215GDDC

PATIENT
  Age: 65 Year
  Sex: Male
  Weight: 88 kg

DRUGS (15)
  1. TAXOTERE [Suspect]
     Indication: NON-SMALL CELL LUNG CANCER
     Dosage: DOSE: UNK
     Route: 042
     Dates: start: 20070809, end: 20070809
  2. PLACEBO [Suspect]
     Indication: NON-SMALL CELL LUNG CANCER
     Dosage: DOSE: DAILY FOR 14 DAYS, THEN 7 DAYS OFF DRUG
     Route: 048
     Dates: start: 20070809
  3. ABT-751 [Suspect]
     Indication: NON-SMALL CELL LUNG CANCER
  4. PARACETAMOL [Concomitant]
     Indication: PAIN
     Dosage: DOSE: UNK (325 NG, AS REQUIRED)
     Dates: start: 20070601
  5. ATENOLOL [Concomitant]
     Dates: start: 20070327
  6. MULTI-VITAMINS [Concomitant]
     Dosage: DOSE QUANTITY: 1
     Dates: start: 20070208
  7. DEXAMETHASONE 0.5MG TAB [Concomitant]
     Dates: start: 20070808
  8. MEDINITE                           /00448801/ [Concomitant]
     Dosage: DOSE: AS REQUIRED (NOS)
     Dates: start: 20070601
  9. GABAPENTIN [Concomitant]
     Indication: NEUROPATHY
     Dates: start: 20070530
  10. HYDROCODONE [Concomitant]
     Indication: PAIN
     Dosage: DOSE: 5/500
     Dates: start: 20070412
  11. PROCHLORPERAZINE [Concomitant]
     Indication: NAUSEA
     Dates: start: 20070213
  12. PROCHLORPERAZINE [Concomitant]
     Indication: VOMITING
     Dates: start: 20070213
  13. PRAZOSIN HCL [Concomitant]
     Dates: start: 20070327
  14. SIMVASTATIN [Concomitant]
     Dates: start: 20070119
  15. WARFARIN SODIUM [Concomitant]
     Dates: start: 20070327

REACTIONS (17)
  - ASPARTATE AMINOTRANSFERASE INCREASED [None]
  - BLOOD ALBUMIN DECREASED [None]
  - BLOOD CALCIUM DECREASED [None]
  - BLOOD CREATINE PHOSPHOKINASE MB INCREASED [None]
  - BLOOD FIBRINOGEN INCREASED [None]
  - BLOOD GLUCOSE INCREASED [None]
  - CEREBROVASCULAR ACCIDENT [None]
  - HAEMOGLOBIN DECREASED [None]
  - HEART RATE INCREASED [None]
  - NEUTROPENIC COLITIS [None]
  - OESOPHAGEAL DISORDER [None]
  - PLATELET COUNT DECREASED [None]
  - PROTEIN TOTAL DECREASED [None]
  - REFUSAL OF TREATMENT BY PATIENT [None]
  - RESPIRATORY RATE INCREASED [None]
  - SEPTIC SHOCK [None]
  - WHITE BLOOD CELL COUNT DECREASED [None]
